FAERS Safety Report 5738943-9 (Version None)
Quarter: 2008Q2

REPORT INFORMATION
  Report Type: 
  Country: None (occurrence: None)
  Receive Date: 20080515
  Receipt Date: 20080505
  Transmission Date: 20081010
  Serious: Yes (Hospitalization)
  Sender: FDA-Public Use
  Company Number: US-JNJFOC-20080206987

PATIENT
  Sex: Male
  Weight: 81.65 kg

DRUGS (12)
  1. DURAGESIC-100 [Suspect]
     Route: 062
  2. DURAGESIC-100 [Suspect]
     Indication: BACK PAIN
     Route: 062
  3. CLORAZEPATE [Concomitant]
     Indication: FEELING OF RELAXATION
     Route: 048
  4. PROPOXY [Concomitant]
     Indication: PAIN
     Route: 048
  5. FLEXERIL [Concomitant]
     Indication: INFLAMMATION
     Route: 048
  6. FLEXERIL [Concomitant]
     Route: 048
  7. NEXIUM [Concomitant]
     Indication: GASTROOESOPHAGEAL REFLUX DISEASE
     Route: 048
  8. FLORADEL ALVELIZER [Concomitant]
     Indication: ASTHMA
     Dosage: 2 PUFFS PER DAY
     Route: 055
  9. ASMANEX TWISTHALER [Concomitant]
     Indication: ASTHMA
     Dosage: 2 PUFFS DAILY
     Route: 055
  10. ASTELION [Concomitant]
     Indication: BRONCHITIS CHRONIC
     Dosage: 2 PUFFS DAILY
     Route: 055
  11. ASPIRIN [Concomitant]
     Indication: BLOOD CHOLESTEROL INCREASED
     Route: 048
  12. BELLADONNA PHENOBARB [Concomitant]
     Indication: IRRITABLE BOWEL SYNDROME
     Route: 048

REACTIONS (5)
  - CHOLELITHIASIS [None]
  - HYPOAESTHESIA FACIAL [None]
  - HYPOAESTHESIA ORAL [None]
  - PHARMACEUTICAL PRODUCT COMPLAINT [None]
  - WITHDRAWAL SYNDROME [None]
